FAERS Safety Report 5069643-9 (Version None)
Quarter: 2006Q3

REPORT INFORMATION
  Report Type: 
  Country: None (occurrence: None)
  Receive Date: 20060803
  Receipt Date: 20060628
  Transmission Date: 20061208
  Serious: Yes (Hospitalization)
  Sender: FDA-Public Use
  Company Number: 2006AP03013

PATIENT
  Age: 23913 Day
  Sex: Female
  Weight: 62 kg

DRUGS (18)
  1. DIPRIVAN [Suspect]
     Indication: INDUCTION OF ANAESTHESIA
     Route: 042
     Dates: start: 20060622, end: 20060622
  2. SEVOFLURANE [Suspect]
     Indication: MAINTENANCE OF ANAESTHESIA
     Route: 055
     Dates: start: 20060622, end: 20060622
  3. MEICELIN [Suspect]
     Route: 042
     Dates: start: 20060622, end: 20060622
  4. ROPION [Suspect]
     Indication: ANALGESIC THERAPY
     Route: 042
     Dates: start: 20060622, end: 20060622
  5. ROPIVACAINE [Concomitant]
     Indication: EPIDURAL ANAESTHESIA
     Route: 008
     Dates: start: 20060622, end: 20060622
  6. ROPIVACAINE [Concomitant]
     Indication: ANALGESIC THERAPY
     Route: 008
     Dates: start: 20060622, end: 20060622
  7. ROPIVACAINE [Concomitant]
     Route: 008
     Dates: start: 20060622, end: 20060624
  8. ROPIVACAINE [Concomitant]
     Route: 008
     Dates: start: 20060622, end: 20060624
  9. XYLOCAINE [Concomitant]
     Indication: ANALGESIC THERAPY
     Route: 008
     Dates: start: 20060622, end: 20060622
  10. CERCINE [Concomitant]
     Indication: PREMEDICATION
     Route: 048
     Dates: start: 20060622, end: 20060622
  11. ALTAT [Concomitant]
     Indication: ANAESTHETIC PREMEDICATION
     Route: 048
     Dates: start: 20060622, end: 20060622
  12. MUSCULAX [Concomitant]
     Indication: HYPOTONIA
     Route: 042
     Dates: start: 20060622, end: 20060622
  13. FENTANEST [Concomitant]
     Indication: ANALGESIC THERAPY
     Route: 042
     Dates: start: 20060622, end: 20060622
  14. FENTANEST [Concomitant]
     Route: 008
     Dates: start: 20060622, end: 20060624
  15. EPHEDRIN [Concomitant]
     Indication: PROCEDURAL HYPOTENSION
     Route: 042
     Dates: start: 20060622, end: 20060622
  16. ATROPINE SULFATE [Concomitant]
     Route: 042
     Dates: start: 20060622, end: 20060622
  17. VAGOSTIGMIN [Concomitant]
     Route: 042
     Dates: start: 20060622, end: 20060622
  18. ADALAT [Concomitant]
     Indication: HYPERTENSION
     Route: 048

REACTIONS (3)
  - BLOOD CREATINE PHOSPHOKINASE INCREASED [None]
  - HEPATIC FUNCTION ABNORMAL [None]
  - MYOGLOBINURIA [None]
